FAERS Safety Report 18431944 (Version 3)
Quarter: 2020Q4

REPORT INFORMATION
  Report Type: Spontaneous
  Country: JP (occurrence: JP)
  Receive Date: 20201027
  Receipt Date: 20201116
  Transmission Date: 20210114
  Serious: Yes (Hospitalization)
  Sender: FDA-Public Use
  Company Number: JP-JNJFOC-20201029271

PATIENT
  Age: 73 Year
  Sex: Female

DRUGS (1)
  1. OPSUMIT [Suspect]
     Active Substance: MACITENTAN
     Indication: SYSTEMIC SCLERODERMA
     Dosage: DOSE UNKNOWN
     Route: 048

REACTIONS (3)
  - Pelvic fracture [Unknown]
  - Ilium fracture [Unknown]
  - Fall [Unknown]

NARRATIVE: CASE EVENT DATE: 20201014
